FAERS Safety Report 14998869 (Version 1)
Quarter: 2018Q2

REPORT INFORMATION
  Report Type: Spontaneous
  Country: US (occurrence: US)
  Receive Date: 20180612
  Receipt Date: 20180612
  Transmission Date: 20180711
  Serious: Yes (Other)
  Sender: FDA-Public Use
  Company Number: US-AMGEN-USASP2018075891

PATIENT
  Age: 82 Year
  Sex: Female

DRUGS (2)
  1. PROLIA [Suspect]
     Active Substance: DENOSUMAB
     Indication: OSTEOPOROSIS POSTMENOPAUSAL
     Dosage: 60 MG, Q6MO
     Route: 065
  2. PROLIA [Suspect]
     Active Substance: DENOSUMAB
     Indication: PROPHYLAXIS

REACTIONS (9)
  - Surgery [Unknown]
  - Dementia [Unknown]
  - Surgical failure [Unknown]
  - Asthenia [Unknown]
  - Ligament sprain [Unknown]
  - Spinal operation [Unknown]
  - Arthropathy [Unknown]
  - Cystitis [Unknown]
  - Accident [Unknown]
